FAERS Safety Report 11166713 (Version 1)
Quarter: 2015Q2

REPORT INFORMATION
  Report Type: Spontaneous
  Country: US (occurrence: None)
  Receive Date: 20150604
  Receipt Date: 20150604
  Transmission Date: 20150821
  Serious: Yes (Death, Hospitalization)
  Sender: FDA-Public Use
  Company Number: None

PATIENT
  Age: 63 Year
  Sex: Male
  Weight: 78.68 kg

DRUGS (1)
  1. BEVACIZUMAB [Suspect]
     Active Substance: BEVACIZUMAB
     Dates: end: 20150513

REACTIONS (2)
  - Metastases to meninges [None]
  - Malignant neoplasm progression [None]

NARRATIVE: CASE EVENT DATE: 20150523
